FAERS Safety Report 4338265-7 (Version None)
Quarter: 2004Q2

REPORT INFORMATION
  Report Type: 
  Country: None (occurrence: None)
  Receive Date: 20040407
  Receipt Date: 20040324
  Transmission Date: 20050107
  Serious: Yes (Death)
  Sender: FDA-Public Use
  Company Number: JP-JNJFOC-20040305729

PATIENT
  Age: 64 Year
  Sex: Male

DRUGS (9)
  1. FENTANYL [Suspect]
     Indication: CANCER PAIN
     Dosage: 2.5 MG, TRANSDERMAL
     Route: 062
     Dates: start: 20040315, end: 20040323
  2. FLUNITRAZEPAM (FLUNOTRAZEPAM) [Concomitant]
  3. DICLOFENAC SODIUM [Concomitant]
  4. HEMORRHOIDS (HAEMORRHOIDAL) [Concomitant]
  5. CIPROFLOXACIN [Concomitant]
  6. CLINDAMYCIN PHOSPHATE [Concomitant]
  7. FAMOTIDINE [Concomitant]
  8. FLUNITRAZEPAM (FLUNITRAZEPAM) [Concomitant]
  9. AMLODIPINE BESILATE (AMLODIPINE BESTILATE) [Concomitant]

REACTIONS (1)
  - DEATH [None]
